FAERS Safety Report 13580728 (Version 1)
Quarter: 2017Q2

REPORT INFORMATION
  Report Type: Other
  Country: LT (occurrence: LT)
  Receive Date: 20170525
  Receipt Date: 20170525
  Transmission Date: 20170830
  Serious: Yes (Other)
  Sender: FDA-Public Use
  Company Number: LT-ORCHID HEALTHCARE-2021195

PATIENT
  Age: 30 Year
  Sex: Female

DRUGS (1)
  1. DIVALPROEX SODIUM. [Suspect]
     Active Substance: DIVALPROEX SODIUM
     Route: 065

REACTIONS (5)
  - Overdose [Recovered/Resolved]
  - Seizure [Recovered/Resolved]
  - Suicide attempt [Recovered/Resolved]
  - Hypocalcaemia [Recovered/Resolved]
  - Vitamin D deficiency [Recovered/Resolved]
